FAERS Safety Report 11975293 (Version 5)
Quarter: 2016Q2

REPORT INFORMATION
  Report Type: Report from Study
  Country: CH (occurrence: CH)
  Receive Date: 20160128
  Receipt Date: 20160626
  Transmission Date: 20160815
  Serious: Yes (Hospitalization, Congenital Anomaly, Other)
  Sender: FDA-Public Use
  Company Number: PHHY2015CH016903

PATIENT
  Age: 1 Month
  Sex: Male
  Weight: 3.29 kg

DRUGS (24)
  1. PARACETAMOL [Concomitant]
     Active Substance: ACETAMINOPHEN
     Indication: FOETAL EXPOSURE DURING PREGNANCY
     Dosage: MATERNAL DOSE: 500 MG, PRN
     Route: 064
  2. PROPESS [Concomitant]
     Active Substance: DINOPROSTONE
     Indication: FOETAL EXPOSURE DURING PREGNANCY
     Dosage: MATERNAL DOSE: 10 MG, BID
     Route: 064
  3. SYNTOCINON [Concomitant]
     Active Substance: OXYTOCIN
     Indication: FOETAL EXPOSURE DURING PREGNANCY
     Dosage: MATERNAL DOSE: 5 MG, ONCE
     Route: 064
     Dates: start: 20141128, end: 20141128
  4. GILENYA [Suspect]
     Active Substance: FINGOLIMOD HYDROCHLORIDE
     Dosage: MATERNAL DOSE: 0.5 MG, QD
     Route: 064
     Dates: start: 20141210
  5. RINGERLOESUNG [Concomitant]
     Indication: FOETAL EXPOSURE DURING PREGNANCY
     Dosage: MATERNAL DOSE: 1000 ML,
     Route: 064
     Dates: start: 20141125, end: 20141125
  6. CALCIUM [Concomitant]
     Active Substance: CALCIUM
     Indication: FOETAL EXPOSURE DURING PREGNANCY
     Dosage: MATERNAL DOSE: 500 MG QD
     Route: 064
  7. AUGMENTIN [Concomitant]
     Active Substance: AMOXICILLIN\CLAVULANATE POTASSIUM
     Dosage: MATERNAL DOSE: 2.2 G, QD
     Route: 064
     Dates: start: 20141128, end: 20141128
  8. NASIVIN                            /06871401/ [Concomitant]
     Indication: FOETAL EXPOSURE DURING PREGNANCY
     Dosage: MATERNAL DOSE: 0.05 %, 2-3 TIMES DAILY
     Route: 064
     Dates: start: 20141127, end: 20141127
  9. AUGMENTIN [Concomitant]
     Active Substance: AMOXICILLIN\CLAVULANATE POTASSIUM
     Indication: FOETAL EXPOSURE DURING PREGNANCY
     Dosage: MATERNAL DOSE: 625 MG, 3X DAILY
     Route: 064
     Dates: start: 20141115, end: 20141115
  10. AUGMENTIN [Concomitant]
     Active Substance: AMOXICILLIN\CLAVULANATE POTASSIUM
     Dosage: MATERNAL DOSE: 2.2 G, QD
     Route: 064
     Dates: start: 20141127, end: 20141127
  11. MISOPROSTOL. [Concomitant]
     Active Substance: MISOPROSTOL
     Dosage: MATERNAL DOSE: 25 UG, 6X DAILY
     Route: 064
     Dates: start: 20141127, end: 20141127
  12. GILENYA [Suspect]
     Active Substance: FINGOLIMOD HYDROCHLORIDE
     Indication: FOETAL EXPOSURE DURING PREGNANCY
     Dosage: MATERNAL DOSE: 0.5 MG, QD
     Route: 064
     Dates: start: 20140303, end: 20140519
  13. VITAMIN D [Concomitant]
     Active Substance: CHOLECALCIFEROL
     Indication: FOETAL EXPOSURE DURING PREGNANCY
     Dosage: MATERNAL DOSE: 1000 IE, ORAL
     Route: 064
     Dates: start: 201402
  14. ELEVIT                             /01730301/ [Concomitant]
     Active Substance: FOLIC ACID\IRON\MINERALS\VITAMINS
     Indication: FOETAL EXPOSURE DURING PREGNANCY
     Dosage: MATERNAL DOSE: 3600 IE, QD
     Route: 064
     Dates: start: 201402, end: 20141125
  15. MISOPROSTOL. [Concomitant]
     Active Substance: MISOPROSTOL
     Indication: FOETAL EXPOSURE DURING PREGNANCY
     Dosage: MATERNAL DOSE: 25 UG, BID
     Route: 064
     Dates: start: 20141126, end: 20141126
  16. NACL [Concomitant]
     Active Substance: SODIUM CHLORIDE
     Dosage: MATERNAL DOSE: 18 ML ONCE
     Route: 064
     Dates: start: 20141128, end: 20141128
  17. NACL [Concomitant]
     Active Substance: SODIUM CHLORIDE
     Dosage: MATERNAL DOSE: 100 ML ONCE
     Route: 064
     Dates: start: 20141128, end: 20141128
  18. PARACETAMOL [Concomitant]
     Active Substance: ACETAMINOPHEN
     Dosage: MATERNAL DOSE: 1000 MG, 4X DAILY
     Route: 064
     Dates: start: 20140914
  19. RIOPAN [Concomitant]
     Active Substance: MAGALDRATE
     Indication: FOETAL EXPOSURE DURING PREGNANCY
     Dosage: MATERNAL DOSE: 800 MG, ONCE
     Route: 064
     Dates: start: 20141128, end: 20141128
  20. BUSCOPAN [Concomitant]
     Active Substance: BUTYLSCOPOLAMINE BROMIDE
     Indication: FOETAL EXPOSURE DURING PREGNANCY
     Dosage: MATERNAL DOSE: 10MG, ONCE
     Route: 064
     Dates: start: 20141128, end: 20141128
  21. DAFALGAN [Concomitant]
     Active Substance: ACETAMINOPHEN
     Indication: FOETAL EXPOSURE DURING PREGNANCY
     Dosage: MATERNAL DOSE: 1 G, PRN
     Route: 064
     Dates: start: 20150812
  22. NALBUPHINE [Concomitant]
     Active Substance: NALBUPHINE
     Indication: FOETAL EXPOSURE DURING PREGNANCY
     Dosage: MATERNAL DOSE: 20 MG, ONCE
     Route: 064
     Dates: start: 20141128, end: 20141128
  23. SOLU-MEDROL [Concomitant]
     Active Substance: METHYLPREDNISOLONE SODIUM SUCCINATE
     Indication: FOETAL EXPOSURE DURING PREGNANCY
     Dosage: MATERNAL DOSE:1000 MG QD
     Route: 064
     Dates: start: 20141128, end: 20141130
  24. NACL [Concomitant]
     Active Substance: SODIUM CHLORIDE
     Indication: FOETAL EXPOSURE DURING PREGNANCY
     Dosage: MATERNAL DOSE: 500 ML ONCE
     Route: 064
     Dates: start: 20141128, end: 20141128

REACTIONS (12)
  - Upper respiratory tract infection [Recovered/Resolved]
  - Pyrexia [Recovered/Resolved]
  - Cough [Unknown]
  - Congenital renal cyst [Not Recovered/Not Resolved]
  - Thermal burn [Unknown]
  - Otitis media [Recovered/Resolved]
  - Foetal exposure during pregnancy [Unknown]
  - Vomiting [Recovered/Resolved]
  - Abdominal pain [Unknown]
  - Haemangioma [Unknown]
  - Viral upper respiratory tract infection [Recovered/Resolved]
  - Influenza [Unknown]

NARRATIVE: CASE EVENT DATE: 20150108
